FAERS Safety Report 6626336-1 (Version None)
Quarter: 2010Q1

REPORT INFORMATION
  Report Type: 
  Country: None (occurrence: None)
  Receive Date: 20100310
  Receipt Date: 20100228
  Transmission Date: 20100710
  Serious: Yes (Death)
  Sender: FDA-Public Use
  Company Number: TW-BAXTER-2010BH005225

PATIENT
  Sex: Male

DRUGS (4)
  1. DIANEAL [Suspect]
     Indication: PERITONEAL DIALYSIS
     Route: 033
     Dates: start: 20090701
  2. DIANEAL [Suspect]
     Route: 033
     Dates: start: 20090701
  3. EXTRANEAL [Suspect]
     Indication: PERITONEAL DIALYSIS
     Route: 033
     Dates: start: 20090701
  4. EXTRANEAL [Suspect]
     Route: 033
     Dates: start: 20090701

REACTIONS (1)
  - CARDIOVASCULAR DISORDER [None]
